FAERS Safety Report 15917782 (Version 1)
Quarter: 2019Q1

REPORT INFORMATION
  Report Type: Spontaneous
  Country: US (occurrence: US)
  Receive Date: 20190205
  Receipt Date: 20190205
  Transmission Date: 20190417
  Serious: No
  Sender: FDA-Public Use
  Company Number: US-PFIZER INC-2016079527

PATIENT
  Age: 65 Year
  Sex: Male

DRUGS (6)
  1. LEVOTHYROXINE. [Concomitant]
     Active Substance: LEVOTHYROXINE
     Dosage: UNK
  2. SANDOSTATIN [Concomitant]
     Active Substance: OCTREOTIDE ACETATE
     Dosage: UNK
  3. SUTENT [Suspect]
     Active Substance: SUNITINIB MALATE
     Dosage: 25 MG, UNK
  4. AMLODIPINE [Concomitant]
     Active Substance: AMLODIPINE BESYLATE
     Dosage: UNK
  5. POTASSIUM [Concomitant]
     Active Substance: POTASSIUM
     Dosage: UNK
  6. SUTENT [Suspect]
     Active Substance: SUNITINIB MALATE
     Indication: SMALL INTESTINE CARCINOMA
     Dosage: 25 MG, CYCLIC (25 MG DAILY, 28 DAYS ON/14 DAYS OFF)
     Dates: start: 201108

REACTIONS (2)
  - Paraesthesia [Unknown]
  - Product use in unapproved indication [Unknown]

NARRATIVE: CASE EVENT DATE: 201108
